FAERS Safety Report 7211471-X (Version None)
Quarter: 2011Q1

REPORT INFORMATION
  Report Type: 
  Country: None (occurrence: None)
  Receive Date: 20110105
  Receipt Date: 20101222
  Transmission Date: 20110831
  Serious: Yes (Hospitalization)
  Sender: FDA-Public Use
  Company Number: PHHY2010JP59742

PATIENT
  Age: 64 Year
  Sex: Male
  Weight: 60 kg

DRUGS (9)
  1. TEGRETOL [Suspect]
     Dosage: UNK
     Route: 048
  2. AZUNOL [Concomitant]
     Indication: PROPHYLAXIS
     Dosage: UNK
     Dates: start: 20100809, end: 20100906
  3. KENALOG [Concomitant]
  4. AFINITOR [Suspect]
     Indication: METASTATIC RENAL CELL CARCINOMA
     Dosage: 10 MG, UNK
     Route: 048
     Dates: start: 20100810, end: 20100831
  5. BETAMETHASONE [Concomitant]
     Dosage: UNK
     Route: 048
  6. STEROIDS NOS [Concomitant]
  7. PREDNISOLONE [Concomitant]
     Dosage: 5 MG, UNK
     Route: 048
     Dates: start: 20100401
  8. GASTER [Concomitant]
     Dosage: UNK
     Route: 048
  9. NOVOLIN 70/30 [Concomitant]
     Dosage: 58 IU, UNK
     Dates: start: 20100401

REACTIONS (4)
  - SKIN DISORDER [None]
  - DYSPNOEA [None]
  - INTERSTITIAL LUNG DISEASE [None]
  - PYREXIA [None]
